FAERS Safety Report 14044669 (Version 1)
Quarter: 2017Q4

REPORT INFORMATION
  Report Type: Spontaneous
  Country: GB (occurrence: GB)
  Receive Date: 20171005
  Receipt Date: 20171005
  Transmission Date: 20180321
  Serious: Yes (Hospitalization)
  Sender: FDA-Public Use
  Company Number: GB-AUROBINDO-AUR-APL-2017-41420

PATIENT
  Age: 68 Year
  Sex: Female

DRUGS (2)
  1. ALENDRONIC ACID [Suspect]
     Active Substance: ALENDRONIC ACID
     Indication: STEROID THERAPY
     Dosage: 70 MG, EVERY WEEK
     Route: 048
     Dates: end: 201706
  2. PREDNISOLONE. [Concomitant]
     Active Substance: PREDNISOLONE
     Indication: PRODUCT USED FOR UNKNOWN INDICATION
     Dosage: LONG TERM
     Route: 048

REACTIONS (2)
  - Atypical femur fracture [Recovered/Resolved with Sequelae]
  - Bone lesion [Recovered/Resolved with Sequelae]

NARRATIVE: CASE EVENT DATE: 201706
